FAERS Safety Report 6025258-7 (Version None)
Quarter: 2008Q4

REPORT INFORMATION
  Report Type: 
  Country: None (occurrence: None)
  Receive Date: 20081229
  Receipt Date: 20081229
  Transmission Date: 20090506
  Serious: Yes (Other)
  Sender: FDA-Public Use
  Company Number: None

PATIENT
  Age: 44 Year
  Sex: Female
  Weight: 61.2356 kg

DRUGS (2)
  1. LUPRON [Suspect]
     Dates: start: 20040201, end: 20040301
  2. LUPRON [Suspect]
     Dates: start: 20040301, end: 20040401

REACTIONS (7)
  - ADVERSE DRUG REACTION [None]
  - BLOOD PRESSURE INCREASED [None]
  - MALAISE [None]
  - MEDICATION ERROR [None]
  - OFF LABEL USE [None]
  - PAIN [None]
  - UNEMPLOYMENT [None]
